FAERS Safety Report 16736942 (Version 1)
Quarter: 2019Q3

REPORT INFORMATION
  Report Type: Spontaneous
  Country: NL (occurrence: NL)
  Receive Date: 20190823
  Receipt Date: 20190823
  Transmission Date: 20191005
  Serious: Yes (Hospitalization)
  Sender: FDA-Public Use
  Company Number: NL-TEVA-2019-NL-1094908

PATIENT
  Age: 69 Year
  Sex: Female
  Weight: 82 kg

DRUGS (10)
  1. VALACICLOVIR TABLET, 500 MG (MILLIGRAM) [Suspect]
     Active Substance: VALACYCLOVIR HYDROCHLORIDE
     Indication: HERPES ZOSTER
     Dosage: 3DD1000MG
     Dates: start: 20190719, end: 20190720
  2. URSODEOXYCHOLZUUR 250MG [Concomitant]
     Dosage: 1DD1
  3. OXYCODON CAPSULE, 5 MG (MILLIGRAM) [Suspect]
     Active Substance: OXYCODONE
     Indication: HERPES ZOSTER
     Dosage: 2DD5MG
     Dates: start: 20190719, end: 20190720
  4. COLECALCIFEROL 800IE [Concomitant]
     Dosage: 1DD1
  5. LEVOTHYROXINE 50MCG [Concomitant]
     Active Substance: LEVOTHYROXINE
     Dosage: 1DD1
  6. BISACODYL. [Concomitant]
     Active Substance: BISACODYL
     Dosage: 1DD10MG
  7. LISINOPRIL. [Concomitant]
     Active Substance: LISINOPRIL
     Dosage: 1DD1
  8. CORTIMENT 9MG [Concomitant]
     Dosage: 1DD1
  9. HYDROCHLOORTHIAZIDE 12,5MG [Concomitant]
     Active Substance: HYDROCHLOROTHIAZIDE
     Dosage: 1DD1
  10. PICOPREP [Concomitant]
     Active Substance: ANHYDROUS CITRIC ACID\MAGNESIUM OXIDE\SODIUM PICOSULFATE
     Dosage: 1DD1

REACTIONS (5)
  - Pruritus [Recovering/Resolving]
  - Pharyngeal swelling [Recovering/Resolving]
  - Swollen tongue [Recovering/Resolving]
  - Swelling [Recovering/Resolving]
  - Dyspnoea [Recovering/Resolving]

NARRATIVE: CASE EVENT DATE: 20190719
